FAERS Safety Report 15419017 (Version 4)
Quarter: 2018Q4

REPORT INFORMATION
  Report Type: Spontaneous
  Country: JP (occurrence: JP)
  Receive Date: 20180924
  Receipt Date: 20181227
  Transmission Date: 20190204
  Serious: Yes (Hospitalization)
  Sender: FDA-Public Use
  Company Number: JP-ELI_LILLY_AND_COMPANY-JP201809006145

PATIENT
  Age: 69 Year
  Sex: Female

DRUGS (6)
  1. PANVITAN M [Concomitant]
     Dosage: UNK
     Route: 048
     Dates: start: 201703, end: 20180424
  2. CYRAMZA [Suspect]
     Active Substance: RAMUCIRUMAB
     Indication: LUNG ADENOCARCINOMA STAGE IV
     Dosage: UNK UNK, CYCLICAL
     Route: 042
     Dates: start: 20180425, end: 20180710
  3. CYRAMZA [Suspect]
     Active Substance: RAMUCIRUMAB
     Dosage: UNK, CYCLICAL
     Route: 042
     Dates: start: 2018
  4. OLOPATADINE. [Concomitant]
     Active Substance: OLOPATADINE
     Indication: RHINITIS ALLERGIC
     Dosage: UNK
     Route: 048
     Dates: start: 201703
  5. ESOMEPRAZOLE MAGNESIUM. [Concomitant]
     Active Substance: ESOMEPRAZOLE MAGNESIUM
     Indication: GASTROOESOPHAGEAL REFLUX DISEASE
     Dosage: UNK
     Route: 048
     Dates: start: 201703
  6. DOCETAXEL. [Suspect]
     Active Substance: DOCETAXEL
     Indication: LUNG ADENOCARCINOMA STAGE IV
     Dosage: UNK UNK, CYCLICAL
     Route: 042
     Dates: start: 20180425, end: 20180710

REACTIONS (1)
  - Hepatic cirrhosis [Recovering/Resolving]

NARRATIVE: CASE EVENT DATE: 20180724
